FAERS Safety Report 8096031-3 (Version None)
Quarter: 2012Q1

REPORT INFORMATION
  Report Type: 
  Country: None (occurrence: None)
  Receive Date: 20120129
  Receipt Date: 20111223
  Transmission Date: 20120608
  Serious: No
  Sender: FDA-Public Use
  Company Number: US-ABBOTT-11P-163-0887079-00

PATIENT
  Sex: Female
  Weight: 56.75 kg

DRUGS (5)
  1. AMBIEN [Concomitant]
     Indication: INSOMNIA
  2. HUMIRA [Suspect]
     Indication: PSORIATIC ARTHROPATHY
     Dates: start: 20110901
  3. ESTROGENIC SUBSTANCE [Concomitant]
     Indication: HORMONE REPLACEMENT THERAPY
     Dosage: PATCH
  4. METHOTREXATE [Concomitant]
     Indication: PSORIATIC ARTHROPATHY
  5. LEXAPRO [Concomitant]
     Indication: DEPRESSION

REACTIONS (3)
  - LARYNGITIS [None]
  - FATIGUE [None]
  - OROPHARYNGEAL PAIN [None]
